FAERS Safety Report 21868382 (Version 2)
Quarter: 2023Q1

REPORT INFORMATION
  Report Type: Spontaneous
  Country: JP (occurrence: JP)
  Receive Date: 20230116
  Receipt Date: 20230224
  Transmission Date: 20230417
  Serious: Yes (Other)
  Sender: FDA-Public Use
  Company Number: JP-TAKEDA-2023TJP000413

PATIENT
  Age: 33 Year
  Sex: Female

DRUGS (4)
  1. TRINTELLIX [Suspect]
     Active Substance: VORTIOXETINE HYDROBROMIDE
     Indication: Depression
     Dosage: 10 MILLIGRAM, QD
     Route: 048
     Dates: start: 20221015, end: 20230203
  2. SULPIRIDE [Concomitant]
     Active Substance: SULPIRIDE
     Indication: Adjustment disorder with mixed anxiety and depressed mood
     Dosage: 50 MILLIGRAM, TID
     Route: 048
     Dates: start: 20221015
  3. ALPRAZOLAM [Concomitant]
     Active Substance: ALPRAZOLAM
     Indication: Adjustment disorder with mixed anxiety and depressed mood
     Dosage: 50 MILLIGRAM, TID
     Route: 048
     Dates: start: 20221015
  4. BROTIZOLAM [Concomitant]
     Active Substance: BROTIZOLAM
     Indication: Adjustment disorder with mixed anxiety and depressed mood
     Dosage: 0.25 MILLIGRAM, QD
     Route: 048
     Dates: start: 20221015

REACTIONS (3)
  - Depressed level of consciousness [Recovered/Resolved]
  - Epilepsy [Recovered/Resolved]
  - Epilepsy [Recovered/Resolved]

NARRATIVE: CASE EVENT DATE: 20221101
